FAERS Safety Report 17834375 (Version 1)
Quarter: 2020Q2

REPORT INFORMATION
  Report Type: Spontaneous
  Country: HR (occurrence: HR)
  Receive Date: 20200528
  Receipt Date: 20200528
  Transmission Date: 20200714
  Serious: Yes (Hospitalization, Other)
  Sender: FDA-Public Use
  Company Number: HR-009507513-2005HRV006874

PATIENT
  Sex: Male

DRUGS (2)
  1. TENOFOVIR [Suspect]
     Active Substance: TENOFOVIR
     Indication: HIV INFECTION
     Dosage: DOSE 1 (UNIT UNKNOWN), QD; 4 BOXES
     Route: 048
     Dates: start: 202001
  2. ISENTRESS [Suspect]
     Active Substance: RALTEGRAVIR POTASSIUM
     Indication: HIV INFECTION
     Dosage: 300 DOSAGE FORM, QD; 1 DOSAGE FORM = 1 TABLET
     Route: 048
     Dates: start: 202001, end: 202001

REACTIONS (3)
  - Coma [Unknown]
  - Intentional overdose [Unknown]
  - Suicide attempt [Unknown]

NARRATIVE: CASE EVENT DATE: 202001
